FAERS Safety Report 6194644-7 (Version None)
Quarter: 2009Q2

REPORT INFORMATION
  Report Type: 
  Country: None (occurrence: None)
  Receive Date: 20090519
  Receipt Date: 20090506
  Transmission Date: 20091009
  Serious: Yes (Other)
  Sender: FDA-Public Use
  Company Number: US-PFIZER INC-2008046638

PATIENT
  Sex: Female
  Weight: 77 kg

DRUGS (12)
  1. PROVERA [Suspect]
     Indication: HORMONE REPLACEMENT THERAPY
     Dosage: 2.5 MG, UNK
     Route: 048
     Dates: start: 19920217, end: 19961115
  2. PROVERA [Suspect]
     Dosage: 10 MG, UNK
     Dates: start: 19920217, end: 19961115
  3. MEDROXYPROGESTERONE AND MEDROXYPROGESTERONE ACETATE [Suspect]
     Indication: HORMONE REPLACEMENT THERAPY
     Dosage: 2.5 MG, UNK
     Dates: start: 19970718, end: 20020418
  4. MEDROXYPROGESTERONE AND MEDROXYPROGESTERONE ACETATE [Suspect]
     Dosage: 5 MG, UNK
     Dates: start: 19970718, end: 20020418
  5. PREMARIN [Suspect]
     Indication: HORMONE REPLACEMENT THERAPY
     Dosage: 0.625 MG, UNK
     Dates: start: 19920217, end: 20020418
  6. PREMARIN [Suspect]
     Dosage: 0.9 MG, UNK
     Dates: start: 19920217, end: 20020418
  7. CYCRIN [Suspect]
     Indication: HORMONE REPLACEMENT THERAPY
     Dosage: 5 MG, UNK
     Dates: start: 19970227, end: 19990502
  8. MEDROXYPROGESTERONE ACETATE [Suspect]
     Indication: HORMONE REPLACEMENT THERAPY
     Dosage: 2.5 MG, UNK
     Dates: start: 19970718, end: 20020418
  9. MEDROXYPROGESTERONE ACETATE [Suspect]
     Dosage: 5 MG, UNK
     Dates: start: 19970718, end: 20020418
  10. CRESTOR [Concomitant]
     Indication: BLOOD CHOLESTEROL
     Dosage: UNK
     Dates: start: 20010101
  11. LESCOL [Concomitant]
     Indication: BLOOD CHOLESTEROL
     Dosage: UNK
     Dates: start: 20010101
  12. SPIRONOLACTONE [Concomitant]
     Indication: HYPOTRICHOSIS
     Dosage: UNK
     Dates: start: 19940101

REACTIONS (3)
  - AMNESIA [None]
  - BREAST CANCER FEMALE [None]
  - NEUROPATHY PERIPHERAL [None]
